FAERS Safety Report 11176507 (Version 4)
Quarter: 2015Q4

REPORT INFORMATION
  Report Type: Spontaneous
  Country: US (occurrence: US)
  Receive Date: 20150610
  Receipt Date: 20151213
  Transmission Date: 20160304
  Serious: Yes (Hospitalization, Other)
  Sender: FDA-Public Use
  Company Number: US-ASTRAZENECA-2015SE52383

PATIENT
  Age: 602 Month
  Sex: Female
  Weight: 82.5 kg

DRUGS (18)
  1. OLAPARIB [Suspect]
     Active Substance: OLAPARIB
     Indication: BRCA1 GENE MUTATION
     Route: 048
     Dates: start: 201504, end: 20150524
  2. PRILOSEC [Concomitant]
     Active Substance: OMEPRAZOLE MAGNESIUM
     Route: 048
     Dates: start: 20150611
  3. OLAPARIB [Suspect]
     Active Substance: OLAPARIB
     Indication: OVARIAN CANCER
     Route: 048
     Dates: start: 201504, end: 20150524
  4. PREDNISONE. [Concomitant]
     Active Substance: PREDNISONE
     Dosage: 3TABS IN /3 DAYS
     Route: 048
     Dates: start: 20150529
  5. OLAPARIB [Suspect]
     Active Substance: OLAPARIB
     Indication: OVARIAN CANCER
     Route: 048
     Dates: start: 20150529
  6. OLAPARIB [Suspect]
     Active Substance: OLAPARIB
     Indication: BRCA1 GENE MUTATION
     Dosage: 50 MG,8 CAPSULE TWO TIME A DAY
     Route: 048
     Dates: start: 20150611
  7. LISINOPRIL. [Suspect]
     Active Substance: LISINOPRIL
     Indication: BLOOD PRESSURE ABNORMAL
     Route: 048
     Dates: start: 20150529
  8. GABAPENTIN. [Concomitant]
     Active Substance: GABAPENTIN
     Route: 048
     Dates: start: 20150529
  9. PREDNISONE. [Concomitant]
     Active Substance: PREDNISONE
     Dosage: 5TABS IN /3 DAYS
     Route: 048
     Dates: start: 20150529
  10. OLAPARIB [Suspect]
     Active Substance: OLAPARIB
     Indication: BRCA1 GENE MUTATION
     Route: 048
     Dates: start: 20150529
  11. PREDNISONE. [Concomitant]
     Active Substance: PREDNISONE
     Dosage: 1TABS IN /3 DAYS
     Route: 048
     Dates: start: 20150529
  12. LABETALOL [Concomitant]
     Active Substance: LABETALOL\LABETALOL HYDROCHLORIDE
     Route: 048
     Dates: start: 20150529
  13. XANAX [Concomitant]
     Active Substance: ALPRAZOLAM
     Indication: NERVOUSNESS
     Route: 048
  14. OLAPARIB [Suspect]
     Active Substance: OLAPARIB
     Indication: OVARIAN CANCER
     Dosage: 50 MG,8 CAPSULE TWO TIME A DAY
     Route: 048
     Dates: start: 20150611
  15. PREDNISONE. [Concomitant]
     Active Substance: PREDNISONE
     Dosage: 6 TABS IN /3 DAYS
     Route: 048
     Dates: start: 20150529
  16. PREDNISONE. [Concomitant]
     Active Substance: PREDNISONE
     Dosage: 2TABS IN /3 DAYS
     Route: 048
     Dates: start: 20150529
  17. LISINOPRIL. [Suspect]
     Active Substance: LISINOPRIL
     Indication: BLOOD PRESSURE ABNORMAL
     Route: 048
     Dates: start: 20150611
  18. XANAX [Concomitant]
     Active Substance: ALPRAZOLAM
     Indication: ANXIETY
     Route: 048

REACTIONS (10)
  - Drug intolerance [Unknown]
  - Dizziness [Unknown]
  - Abdominal discomfort [Unknown]
  - Asthenia [Unknown]
  - Dyspnoea [Unknown]
  - Anxiety [Unknown]
  - Haemolytic anaemia [Unknown]
  - Lymphadenopathy [Unknown]
  - Hypotension [Unknown]
  - Peripheral swelling [Unknown]

NARRATIVE: CASE EVENT DATE: 201505
